FAERS Safety Report 5493810-3 (Version None)
Quarter: 2007Q4

REPORT INFORMATION
  Report Type: 
  Country: None (occurrence: None)
  Receive Date: 20071015
  Receipt Date: 20070907
  Transmission Date: 20080405
  Serious: No
  Sender: FDA-Public Use
  Company Number: 2007SP003125

PATIENT
  Age: 46 Year
  Sex: Female

DRUGS (5)
  1. LUNESTA [Suspect]
     Dosage: 2 MG; ORAL
     Route: 048
  2. LAMOTRIGINE [Concomitant]
  3. LEXAPRO [Concomitant]
  4. BENZODIAZEPINE [Concomitant]
  5. DERIVATIVES [Concomitant]

REACTIONS (1)
  - HEART RATE DECREASED [None]
